FAERS Safety Report 5267625-5 (Version None)
Quarter: 2007Q1

REPORT INFORMATION
  Report Type: 
  Country: None (occurrence: None)
  Receive Date: 20070316
  Receipt Date: 20070308
  Transmission Date: 20070707
  Serious: Yes (Hospitalization, Other)
  Sender: FDA-Public Use
  Company Number: DE-AMGEN-UK207570

PATIENT
  Age: 80 Year
  Sex: Male

DRUGS (2)
  1. ARANESP [Suspect]
     Indication: DIALYSIS
     Route: 065
  2. IRON [Concomitant]
     Route: 042

REACTIONS (3)
  - ANAEMIA [None]
  - CEREBRAL DISORDER [None]
  - MENTAL STATUS CHANGES [None]
